FAERS Safety Report 20385064 (Version 2)
Quarter: 2022Q1

REPORT INFORMATION
  Report Type: Spontaneous
  Country: US (occurrence: US)
  Receive Date: 20220127
  Receipt Date: 20220127
  Transmission Date: 20220423
  Serious: No
  Sender: FDA-Public Use
  Company Number: US-ALLERGAN-2122040US

PATIENT
  Sex: Female

DRUGS (7)
  1. BOTOX [Suspect]
     Active Substance: ONABOTULINUMTOXINA
     Indication: Temporomandibular joint syndrome
     Dosage: UNK UNK, SINGLE
     Dates: start: 202105, end: 202105
  2. BOTOX [Suspect]
     Active Substance: ONABOTULINUMTOXINA
     Dosage: UNK UNK, SINGLE
     Dates: start: 202105, end: 202105
  3. BOTOX [Suspect]
     Active Substance: ONABOTULINUMTOXINA
     Dosage: UNK UNK, SINGLE
     Dates: start: 202105, end: 202105
  4. BOTOX COSMETIC [Suspect]
     Active Substance: ONABOTULINUMTOXINA
     Indication: Skin wrinkling
     Dosage: 10 UNITS, SINGLE
     Dates: start: 202105, end: 202105
  5. MODERNA COVID-19 VACCINE [Concomitant]
     Active Substance: ELASOMERAN
     Indication: COVID-19 immunisation
     Dosage: UNK
     Dates: start: 202102, end: 202102
  6. MODERNA COVID-19 VACCINE [Concomitant]
     Active Substance: ELASOMERAN
     Dosage: UNK, SINGLE
     Dates: start: 202103, end: 202103
  7. unspecified thyroid  medication [Concomitant]
     Indication: Autoimmune thyroiditis

REACTIONS (6)
  - Nausea [Not Recovered/Not Resolved]
  - Off label use [Unknown]
  - Endodontic procedure [Unknown]
  - Temporomandibular joint syndrome [Unknown]
  - Face injury [Unknown]
  - Dizziness [Not Recovered/Not Resolved]

NARRATIVE: CASE EVENT DATE: 20210101
